FAERS Safety Report 13651691 (Version 2)
Quarter: 2017Q2

REPORT INFORMATION
  Report Type: Spontaneous
  Country: TR (occurrence: TR)
  Receive Date: 20170614
  Receipt Date: 20170623
  Transmission Date: 20170830
  Serious: No
  Sender: FDA-Public Use
  Company Number: TR-ASTRAZENECA-2017SE59713

PATIENT
  Age: 50 Year
  Sex: Female

DRUGS (1)
  1. FORZIGA [Suspect]
     Active Substance: DAPAGLIFLOZIN
     Indication: TYPE 2 DIABETES MELLITUS
     Route: 048

REACTIONS (2)
  - Blood creatine increased [Recovered/Resolved]
  - Akinesia [Unknown]
